FAERS Safety Report 5509667-8 (Version None)
Quarter: 2007Q4

REPORT INFORMATION
  Report Type: 
  Country: None (occurrence: None)
  Receive Date: 20071107
  Receipt Date: 20071107
  Transmission Date: 20080405
  Serious: Yes (Hospitalization)
  Sender: FDA-Public Use
  Company Number: None

PATIENT
  Age: 74 Year
  Sex: Male

DRUGS (2)
  1. LISINOPRIL AND HYDROCHLOROTHIAZIDE [Suspect]
     Indication: HYPERTENSION
     Dosage: 25/20MG EVERY DAY PO
     Route: 048
     Dates: start: 20070130, end: 20070709
  2. AMLODIPINE [Suspect]
     Dosage: 10MG EVERY DAY PO
     Route: 048
     Dates: start: 20070612

REACTIONS (5)
  - BLOOD CREATININE INCREASED [None]
  - BLOOD UREA INCREASED [None]
  - DIZZINESS [None]
  - HYPERKALAEMIA [None]
  - MALAISE [None]
